FAERS Safety Report 4656577-4 (Version None)
Quarter: 2005Q2

REPORT INFORMATION
  Report Type: 
  Country: None (occurrence: None)
  Receive Date: 20050506
  Receipt Date: 20050421
  Transmission Date: 20051028
  Serious: Yes (Other)
  Sender: FDA-Public Use
  Company Number: 310001M05CHE

PATIENT
  Age: 36 Year
  Sex: Female
  Weight: 58 kg

DRUGS (2)
  1. GONAL-F [Suspect]
     Indication: ASSISTED FERTILISATION
     Dosage: 225 IU, 1 IN 1 DAYS,  SUBCUTANEOUS
     Route: 058
     Dates: start: 20050404, end: 20050407
  2. DECAPEPTYL (GONADORELIN) [Concomitant]

REACTIONS (13)
  - FATIGUE [None]
  - HEADACHE [None]
  - HOT FLUSH [None]
  - HYPERHIDROSIS [None]
  - LARYNGOSPASM [None]
  - LATENT TETANY [None]
  - LOSS OF CONSCIOUSNESS [None]
  - MUSCLE SPASMS [None]
  - NAUSEA [None]
  - TACHYCARDIA [None]
  - TONGUE DISORDER [None]
  - VERTIGO [None]
  - VOMITING [None]
